FAERS Safety Report 16282352 (Version 1)
Quarter: 2019Q2

REPORT INFORMATION
  Report Type: Spontaneous
  Country: HU (occurrence: HU)
  Receive Date: 20190507
  Receipt Date: 20190507
  Transmission Date: 20190711
  Serious: Yes (Other)
  Sender: FDA-Public Use
  Company Number: PHHY2019HU103424

PATIENT
  Age: 84 Year

DRUGS (2)
  1. KISQALI [Suspect]
     Active Substance: RIBOCICLIB
     Dosage: UNK (6 CYCLES)
     Route: 065
  2. KISQALI [Suspect]
     Active Substance: RIBOCICLIB
     Indication: LUNG CANCER METASTATIC
     Dosage: UNK (2ND CYCLE)
     Route: 065

REACTIONS (4)
  - Lung cancer metastatic [Unknown]
  - Product use in unapproved indication [Unknown]
  - Neutropenia [Unknown]
  - Malignant neoplasm progression [Unknown]
